FAERS Safety Report 11746620 (Version 1)
Quarter: 2015Q4

REPORT INFORMATION
  Report Type: Spontaneous
  Country: GB (occurrence: None)
  Receive Date: 20151116
  Receipt Date: 20151116
  Transmission Date: 20160304
  Serious: Yes (Hospitalization)
  Sender: FDA-Public Use
  Company Number: GB2015K7019SPO

PATIENT
  Age: 63 Year
  Sex: Female
  Weight: 56 kg

DRUGS (6)
  1. LANSOPRAZOLE GENERIC (LANSOPRAZOLE) UNKNOWN [Suspect]
     Active Substance: LANSOPRAZOLE
     Indication: GASTRITIS
     Route: 048
     Dates: start: 20150101
  2. CALCICHEW D3 (CALCIUM CARBONATE, CHOLECALCIFEROL, CHOLECALCIFEROL CONCENTRATE (POWDER FORM), COLECALCIFEROL, VITAMIN D3) [Concomitant]
  3. HYDROXYCHLOROQUINE SULPHATE (HYDROXYCHLOROQUINE) [Concomitant]
  4. MYFENAX (MYCOPHENOLATE MOFETIL) [Concomitant]
  5. PREDNISOLONE. [Concomitant]
     Active Substance: PREDNISOLONE
  6. LANSOPRAZOLE GENERIC (LANSOPRAZOLE) UNKNOWN [Suspect]
     Active Substance: LANSOPRAZOLE
     Indication: DRUG TOXICITY PROPHYLAXIS
     Route: 048
     Dates: start: 20150101

REACTIONS (4)
  - Colitis [None]
  - Abnormal loss of weight [None]
  - Neurological symptom [None]
  - Paraesthesia [None]

NARRATIVE: CASE EVENT DATE: 20150116
